FAERS Safety Report 6160334-X (Version None)
Quarter: 2009Q2

REPORT INFORMATION
  Report Type: 
  Country: None (occurrence: None)
  Receive Date: 20090415
  Receipt Date: 20090415
  Transmission Date: 20091009
  Serious: No
  Sender: FDA-Public Use
  Company Number: None

PATIENT
  Age: 11 Year
  Sex: Female
  Weight: 40.8237 kg

DRUGS (2)
  1. KENALOG [Suspect]
     Indication: RASH
     Dates: start: 20081003, end: 20081003
  2. KENALOG [Suspect]
     Indication: RASH PAPULAR
     Dates: start: 20081003, end: 20081003

REACTIONS (2)
  - SKIN DISCOLOURATION [None]
  - SKIN DISORDER [None]
